FAERS Safety Report 17615031 (Version 6)
Quarter: 2020Q2

REPORT INFORMATION
  Report Type: Spontaneous
  Country: US (occurrence: US)
  Receive Date: 20200402
  Receipt Date: 20200630
  Transmission Date: 20200713
  Serious: No
  Sender: FDA-Public Use
  Company Number: US-PFIZER INC-2018489410

PATIENT
  Age: 68 Year
  Sex: Female

DRUGS (3)
  1. PRISTIQ EXTENDED-RELEASE [Suspect]
     Active Substance: DESVENLAFAXINE SUCCINATE
     Indication: DEPRESSION
     Dosage: 150 MG, 1X/DAY (ONE 50 MG TABLET AND ONE 100 MG TABLET)
     Route: 048
  2. PRISTIQ EXTENDED-RELEASE [Suspect]
     Active Substance: DESVENLAFAXINE SUCCINATE
     Dosage: 150 MG, DAILY [50 MG + 100 MG = 150 MG DAILY]
     Route: 048
  3. PRISTIQ EXTENDED-RELEASE [Suspect]
     Active Substance: DESVENLAFAXINE SUCCINATE
     Indication: ANXIETY
     Dosage: 150 MG, 1X/DAY (ONE 50 MG TABLET AND ONE 100 MG TABLET)
     Route: 048
     Dates: start: 20200330

REACTIONS (2)
  - Overdose [Unknown]
  - Gait disturbance [Unknown]
